FAERS Safety Report 14179815 (Version 1)
Quarter: 2017Q4

REPORT INFORMATION
  Report Type: Spontaneous
  Country: US (occurrence: US)
  Receive Date: 20171110
  Receipt Date: 20171110
  Transmission Date: 20180321
  Serious: No
  Sender: FDA-Public Use
  Company Number: US-BAYER-2017-215537

PATIENT
  Age: 4 Year
  Sex: Male
  Weight: 15.4 kg

DRUGS (4)
  1. BAYER ASPIRIN [Suspect]
     Active Substance: ASPIRIN
     Dosage: UNK
  2. ANTIHEMOPHILIC FACTOR VIII, PLASMA/ALBUMIN-FREE (RECOMBINANT) [Concomitant]
     Dosage: 1250 UNITS
     Route: 042
     Dates: start: 20170919
  3. ALEVE [Suspect]
     Active Substance: NAPROXEN SODIUM
     Dosage: UNK
  4. ANTIHEMOPHILIC FACTOR VIII, PLASMA/ALBUMIN-FREE (RECOMBINANT) [Concomitant]
     Dosage: 1000 UNITS
     Route: 042

REACTIONS (1)
  - Drug hypersensitivity [Unknown]
